FAERS Safety Report 5354489-4 (Version None)
Quarter: 2007Q2

REPORT INFORMATION
  Report Type: 
  Country: None (occurrence: None)
  Receive Date: 20070612
  Receipt Date: 20070607
  Transmission Date: 20071010
  Serious: Yes (Hospitalization)
  Sender: FDA-Public Use
  Company Number: US-ABBOTT-07P-163-0370964-00

PATIENT
  Sex: Female
  Weight: 63.56 kg

DRUGS (12)
  1. HUMIRA [Suspect]
     Indication: PSORIATIC ARTHROPATHY
     Dosage: SYRINGE
     Route: 058
     Dates: start: 20060101, end: 20060601
  2. HUMIRA [Suspect]
     Dosage: SYRINGE
     Route: 058
     Dates: start: 20060601, end: 20070401
  3. HUMIRA [Suspect]
     Dosage: PEN
     Route: 058
     Dates: start: 20070401, end: 20070509
  4. HUMIRA [Suspect]
     Dosage: PEN
     Route: 058
     Dates: start: 20070523
  5. LEVOTHYROXINE SODIUM [Concomitant]
     Indication: DRUG USE FOR UNKNOWN INDICATION
  6. FEXOFENADINE [Concomitant]
     Indication: DRUG USE FOR UNKNOWN INDICATION
  7. GUAIFENESIN [Concomitant]
     Indication: DRUG USE FOR UNKNOWN INDICATION
  8. LANSOPRAZOLE [Concomitant]
     Indication: DRUG USE FOR UNKNOWN INDICATION
  9. SERETIDE [Concomitant]
     Indication: DRUG USE FOR UNKNOWN INDICATION
  10. IBANDRONATE SODIUM [Concomitant]
     Indication: DRUG USE FOR UNKNOWN INDICATION
  11. ESTRODERM PATCHES [Concomitant]
     Indication: DRUG USE FOR UNKNOWN INDICATION
  12. VICODIN [Concomitant]
     Indication: DRUG USE FOR UNKNOWN INDICATION

REACTIONS (4)
  - DRUG INEFFECTIVE [None]
  - JOINT SWELLING [None]
  - KNEE ARTHROPLASTY [None]
  - PAIN IN EXTREMITY [None]
